APPROVED DRUG PRODUCT: CEFOXITIN IN PLASTIC CONTAINER
Active Ingredient: CEFOXITIN SODIUM
Strength: EQ 100GM BASE
Dosage Form/Route: POWDER;INTRAVENOUS
Application: A200938 | Product #001
Applicant: SAMSON MEDICAL TECHNOLOGIES LLC
Approved: Nov 16, 2015 | RLD: No | RS: No | Type: RX